FAERS Safety Report 4396317-X (Version None)
Quarter: 2004Q3

REPORT INFORMATION
  Report Type: 
  Country: None (occurrence: None)
  Receive Date: 20040713
  Receipt Date: 20040630
  Transmission Date: 20050211
  Serious: Yes (Death)
  Sender: FDA-Public Use
  Company Number: DK-GLAXOSMITHKLINE-B0338274A

PATIENT
  Sex: Female

DRUGS (5)
  1. LAMICTAL [Suspect]
     Indication: EPILEPSY
     Route: 048
  2. OXCARBAZEPINE [Concomitant]
  3. LEVETIRACETAM [Concomitant]
  4. TOPIMAX [Concomitant]
  5. STESOLID [Concomitant]

REACTIONS (1)
  - OVERDOSE [None]
